FAERS Safety Report 5069148-5 (Version None)
Quarter: 2006Q3

REPORT INFORMATION
  Report Type: 
  Country: None (occurrence: None)
  Receive Date: 20060731
  Receipt Date: 20060718
  Transmission Date: 20061208
  Serious: Yes (Death)
  Sender: FDA-Public Use
  Company Number: HQWYE097318JUL06

PATIENT
  Age: 44 Year
  Sex: Male

DRUGS (5)
  1. EFFEXOR XR [Suspect]
     Dosage: OVERDOSE AMOUNT UNKNOWN
  2. AMITRIPTYLINE (AMITRIPTYLINE) [Suspect]
     Dosage: OVERDOSE AMOUNT UNKNOWN
  3. AMLODIPINE [Suspect]
     Dosage: 90 TABLETS AT 10 MG EACH (OVERDOSE AMOUNT)
  4. BENICAR [Suspect]
     Dosage: 60 TABLETS AT 40 MG EACH (OVERDOSE AMOUNT)
  5. NORVASC [Suspect]
     Dosage: 120 TABLETS AT 10 MG EACH (OVERDOSE AMOUNT)

REACTIONS (10)
  - ARTERIOSCLEROSIS CORONARY ARTERY [None]
  - CARDIOMEGALY [None]
  - COMPLETED SUICIDE [None]
  - CONTUSION [None]
  - DRUG TOXICITY [None]
  - EXCORIATION [None]
  - FOAMING AT MOUTH [None]
  - MULTIPLE DRUG OVERDOSE INTENTIONAL [None]
  - PULMONARY CONGESTION [None]
  - PULMONARY OEDEMA [None]
